FAERS Safety Report 7090748-5 (Version None)
Quarter: 2010Q4

REPORT INFORMATION
  Report Type: 
  Country: None (occurrence: None)
  Receive Date: 20101109
  Receipt Date: 20101027
  Transmission Date: 20110411
  Serious: Yes (Hospitalization, Other)
  Sender: FDA-Public Use
  Company Number: PHHY2010AU25672

PATIENT
  Sex: Male

DRUGS (3)
  1. CLOZARIL [Suspect]
     Indication: SCHIZOPHRENIA
     Dosage: 650 MG
     Route: 048
     Dates: start: 20050922
  2. PAROXETINE HCL [Concomitant]
     Dosage: 60 MG,DAILY
  3. SOLIAN [Concomitant]
     Dosage: 600 MG

REACTIONS (4)
  - ABSCESS LIMB [None]
  - EYE ABSCESS [None]
  - EYE OPERATION [None]
  - STAPHYLOCOCCAL ABSCESS [None]
